FAERS Safety Report 22787558 (Version 3)
Quarter: 2023Q4

REPORT INFORMATION
  Report Type: Spontaneous
  Country: PR (occurrence: PR)
  Receive Date: 20230804
  Receipt Date: 20231116
  Transmission Date: 20240110
  Serious: No
  Sender: FDA-Public Use
  Company Number: PR-PFIZER INC-PV202300129049

PATIENT
  Age: 13 Year

DRUGS (1)
  1. GENOTROPIN [Suspect]
     Active Substance: SOMATROPIN
     Dosage: 6 DAYS A WEEK

REACTIONS (1)
  - Device leakage [Unknown]
